FAERS Safety Report 17374017 (Version 3)
Quarter: 2020Q1

REPORT INFORMATION
  Report Type: Spontaneous
  Country: BE (occurrence: BE)
  Receive Date: 20200205
  Receipt Date: 20200225
  Transmission Date: 20200409
  Serious: Yes (Hospitalization, Other)
  Sender: FDA-Public Use
  Company Number: BE-JNJFOC-20200200935

PATIENT
  Age: 68 Year
  Sex: Female

DRUGS (10)
  1. SEDACID                            /00661201/ [Concomitant]
     Active Substance: OMEPRAZOLE
     Indication: PRODUCT USED FOR UNKNOWN INDICATION
     Dosage: STRENGTH: 20 MG
     Route: 065
  2. HERIA [Concomitant]
     Active Substance: TIBOLONE
     Indication: PRODUCT USED FOR UNKNOWN INDICATION
     Dosage: STRENGTH: 2,5 MG
     Route: 065
  3. CO VALSARTAN                       /01319601/ [Concomitant]
     Indication: PRODUCT USED FOR UNKNOWN INDICATION
     Dosage: STRENGTH: 160 MG/25 MG
     Route: 065
  4. SPORANOX [Suspect]
     Active Substance: ITRACONAZOLE
     Indication: FUNGAL INFECTION
     Dosage: 2X2 DOSAGE FORMS DURING 7 DAYS, NOT VERIFIABLE END DATE AROUND 13/12/2019
     Route: 048
  5. SERETIDE [Concomitant]
     Active Substance: FLUTICASONE PROPIONATE\SALMETEROL XINAFOATE
     Indication: PRODUCT USED FOR UNKNOWN INDICATION
     Dosage: 50 MICROGRAM/250 MICROGRAM/ DOSE
     Route: 065
  6. DAFALGAN [Concomitant]
     Active Substance: ACETAMINOPHEN
     Indication: PAIN
     Dosage: IT IS NOT CLEAR WHICH ANALGESIC DRUG THE PATIENT HAD ALREADY TAKEN AT THE TIME OF HOSPITALISATION.
     Route: 065
  7. SIMVASTATINE [Interacting]
     Active Substance: SIMVASTATIN
     Indication: PRODUCT USED FOR UNKNOWN INDICATION
     Dosage: 40 MG?PATIENT HAS BEEN TAKEN THE DRUG DURING YEARS
     Route: 048
  8. ALLOPURINOL. [Concomitant]
     Active Substance: ALLOPURINOL
     Indication: PRODUCT USED FOR UNKNOWN INDICATION
     Dosage: 300 MG
     Route: 065
  9. SPIDIFEN [Concomitant]
     Active Substance: IBUPROFEN ARGININE
     Indication: PAIN
     Dosage: IT IS NOT CLEAR WHICH ANALGESIC DRUG THE PATIENT HAD ALREADY TAKEN AT THE TIME OF HOSPITALISATION.
     Route: 007
  10. MEDROL [Concomitant]
     Active Substance: METHYLPREDNISOLONE
     Indication: PAIN
     Dosage: STRENGTH: 32 MG; ?FOR 3 DAYS AT THIS DOSE IN REDUCTION SCHEDULE
     Dates: start: 20191213

REACTIONS (4)
  - Myalgia [Recovering/Resolving]
  - Rhabdomyolysis [Recovering/Resolving]
  - Drug interaction [Recovering/Resolving]
  - Contraindicated product administered [Unknown]

NARRATIVE: CASE EVENT DATE: 20191209
